FAERS Safety Report 8265658-8 (Version None)
Quarter: 2012Q2

REPORT INFORMATION
  Report Type: 
  Country: None (occurrence: None)
  Receive Date: 20120406
  Receipt Date: 20120327
  Transmission Date: 20120825
  Serious: Yes (Hospitalization, Other)
  Sender: FDA-Public Use
  Company Number: US-ABBOTT-12P-163-0919239-00

PATIENT
  Sex: Male
  Weight: 95.34 kg

DRUGS (8)
  1. HUMIRA [Suspect]
     Indication: CROHN'S DISEASE
     Dates: end: 20110101
  2. HUMIRA [Suspect]
     Dates: start: 20120322
  3. SEROQUEL [Concomitant]
     Indication: PRODUCT USED FOR UNKNOWN INDICATION
  4. ASPIRIN [Concomitant]
     Indication: PRODUCT USED FOR UNKNOWN INDICATION
  5. CALCIUM +D [Concomitant]
     Indication: PRODUCT USED FOR UNKNOWN INDICATION
  6. MERCAPTOPURINE [Suspect]
     Indication: PRODUCT USED FOR UNKNOWN INDICATION
  7. PREDNISONE TAB [Concomitant]
     Indication: PRODUCT USED FOR UNKNOWN INDICATION
  8. MULTI-VITAMIN [Concomitant]
     Indication: PRODUCT USED FOR UNKNOWN INDICATION

REACTIONS (11)
  - GASTROINTESTINAL STOMA COMPLICATION [None]
  - INTESTINAL HAEMORRHAGE [None]
  - HEPATIC STEATOSIS [None]
  - HAEMOGLOBIN DECREASED [None]
  - SKIN ULCER [None]
  - CHOLELITHIASIS [None]
  - HAEMATOCRIT DECREASED [None]
  - HERNIA [None]
  - WHITE BLOOD CELL COUNT ABNORMAL [None]
  - HAEMORRHAGE [None]
  - PLATELET COUNT DECREASED [None]
